FAERS Safety Report 9258828 (Version 1)
Quarter: 2013Q2

REPORT INFORMATION
  Report Type: Report from Study
  Country: US (occurrence: US)
  Receive Date: 20130426
  Receipt Date: 20130426
  Transmission Date: 20140414
  Serious: Yes (Other)
  Sender: FDA-Public Use
  Company Number: US-GLAXOSMITHKLINE-A1015877B

PATIENT
  Age: 78 Year
  Sex: Male

DRUGS (1)
  1. ELTROMBOPAG [Suspect]
     Indication: MYELODYSPLASTIC SYNDROME
     Route: 048
     Dates: start: 20130104, end: 20130321

REACTIONS (2)
  - Bone marrow reticulin fibrosis [Unknown]
  - Hyperbilirubinaemia [Recovered/Resolved]
